FAERS Safety Report 5698816-7 (Version None)
Quarter: 2008Q2

REPORT INFORMATION
  Report Type: 
  Country: None (occurrence: None)
  Receive Date: 20080403
  Receipt Date: 20080328
  Transmission Date: 20081010
  Serious: Yes (Death, Hospitalization)
  Sender: FDA-Public Use
  Company Number: 028-C5013-07080287

PATIENT
  Age: 65 Year
  Sex: Male
  Weight: 79.2 kg

DRUGS (2)
  1. CC-5013 (LENALIDOMIDE) (CAPSULES) [Suspect]
     Indication: MULTIPLE MYELOMA
     Dosage: 25 MG, DAILY, ORAL
     Route: 048
     Dates: start: 20070524, end: 20070628
  2. DEXAMETHASONE TAB [Suspect]
     Indication: MULTIPLE MYELOMA
     Dosage: 40  MG, DAYS 1-4, 9-12, 17-20,
     Dates: start: 20070524, end: 20070101

REACTIONS (15)
  - ANAEMIA [None]
  - AZOTAEMIA [None]
  - CONTUSION [None]
  - DISEASE PROGRESSION [None]
  - DYSPHAGIA [None]
  - ENTEROBACTER SEPSIS [None]
  - KLEBSIELLA SEPSIS [None]
  - MOUTH HAEMORRHAGE [None]
  - MUCOSAL INFLAMMATION [None]
  - MUCOUS MEMBRANE DISORDER [None]
  - MULTIPLE MYELOMA [None]
  - OROPHARYNGEAL BLISTERING [None]
  - PETECHIAE [None]
  - RENAL FAILURE ACUTE [None]
  - TONGUE BLISTERING [None]
